FAERS Safety Report 5994177-4 (Version None)
Quarter: 2008Q4

REPORT INFORMATION
  Report Type: 
  Country: None (occurrence: None)
  Receive Date: 20081212
  Receipt Date: 20080903
  Transmission Date: 20090506
  Serious: No
  Sender: FDA-Public Use
  Company Number: US-ABBOTT-08P-163-0474047-00

PATIENT
  Sex: Male

DRUGS (3)
  1. HUMIRA [Suspect]
     Indication: PSORIASIS
     Route: 050
     Dates: start: 20080701
  2. LEVOTHYROXINE SODIUM [Concomitant]
     Indication: INFLAMMATION
     Route: 048
  3. CETIRIZINE HYDROCHLORIDE [Concomitant]
     Indication: RESPIRATORY DISORDER
     Route: 048

REACTIONS (2)
  - DIZZINESS [None]
  - SOMNOLENCE [None]
